FAERS Safety Report 4723540-4 (Version None)
Quarter: 2005Q3

REPORT INFORMATION
  Report Type: 
  Country: None (occurrence: None)
  Receive Date: 20050725
  Receipt Date: 20050531
  Transmission Date: 20060218
  Serious: Yes (Other)
  Sender: FDA-Public Use
  Company Number: AU-AMGEN-US137138

PATIENT
  Sex: Male

DRUGS (1)
  1. NEULASTA [Suspect]
     Indication: BLOOD STEM CELL HARVEST
     Route: 058

REACTIONS (7)
  - ALANINE AMINOTRANSFERASE INCREASED [None]
  - ASPARTATE AMINOTRANSFERASE INCREASED [None]
  - BONE PAIN [None]
  - HEPATITIS [None]
  - INFLUENZA LIKE ILLNESS [None]
  - TRANSAMINASES INCREASED [None]
  - WHITE BLOOD CELL COUNT INCREASED [None]
